FAERS Safety Report 12969180 (Version 3)
Quarter: 2016Q4

REPORT INFORMATION
  Report Type: Spontaneous
  Country: JP (occurrence: JP)
  Receive Date: 20161123
  Receipt Date: 20161215
  Transmission Date: 20170207
  Serious: Yes (Death, Hospitalization, Other)
  Sender: FDA-Public Use
  Company Number: JP-ELI_LILLY_AND_COMPANY-JP201607009242

PATIENT
  Age: 76 Year
  Sex: Male

DRUGS (5)
  1. CYRAMZA [Suspect]
     Active Substance: RAMUCIRUMAB
     Dosage: 8 MG/KG, OTHER
     Route: 042
     Dates: start: 20160804
  2. PACLITAXEL. [Suspect]
     Active Substance: PACLITAXEL
     Indication: GASTRIC CANCER
     Dosage: 80 MG/M2, OTHER
     Route: 042
     Dates: start: 20160707, end: 20160714
  3. PACLITAXEL. [Suspect]
     Active Substance: PACLITAXEL
     Dosage: 55 MG/M2, OTHER
     Route: 042
  4. CYRAMZA [Suspect]
     Active Substance: RAMUCIRUMAB
     Indication: GASTRIC CANCER
     Dosage: 8 MG/KG, OTHER
     Route: 042
     Dates: start: 20160707, end: 20160707
  5. PACLITAXEL. [Suspect]
     Active Substance: PACLITAXEL
     Dosage: 80 MG/M2, OTHER
     Route: 042
     Dates: start: 20160804

REACTIONS (3)
  - Febrile neutropenia [Not Recovered/Not Resolved]
  - Neutrophil count decreased [Recovered/Resolved]
  - Septic shock [Fatal]

NARRATIVE: CASE EVENT DATE: 20160721
